FAERS Safety Report 22272913 (Version 1)
Quarter: 2023Q2

REPORT INFORMATION
  Report Type: Spontaneous
  Country: SE (occurrence: SE)
  Receive Date: 20230502
  Receipt Date: 20230502
  Transmission Date: 20230722
  Serious: Yes (Congenital Anomaly)
  Sender: FDA-Public Use
  Company Number: None

PATIENT
  Age: 5 Month
  Sex: Male

DRUGS (1)
  1. ETANERCEPT [Suspect]
     Active Substance: ETANERCEPT
     Indication: Psoriatic arthropathy
     Dosage: SOLUTION FOR INJECTION, SOLUTION IN PREV. INJECTION PEN
     Route: 064
     Dates: start: 2018, end: 20211231

REACTIONS (2)
  - Acrocephalosyndactyly [Unknown]
  - Drug exposure before pregnancy [Unknown]
